FAERS Safety Report 7922504 (Version 8)
Quarter: 2013Q2

REPORT INFORMATION
  Report Type: Spontaneous
  Country: US (occurrence: US)
  Receive Date: 20110429
  Receipt Date: 20130418
  Transmission Date: 20140414
  Serious: No
  Sender: FDA-Public Use
  Company Number: US-ASTRAZENECA-2011SE02328

PATIENT
  Age: 58 Year
  Sex: Female

DRUGS (2)
  1. NEXIUM [Suspect]
     Route: 048
     Dates: start: 200910
  2. SEROQUEL [Suspect]
     Indication: BIPOLAR DISORDER
     Route: 048
     Dates: start: 200910, end: 201001

REACTIONS (13)
  - Gastrooesophageal reflux disease [Unknown]
  - Concussion [Unknown]
  - Arthritis [Unknown]
  - Feeling abnormal [Unknown]
  - Bipolar disorder [Unknown]
  - Adverse event [Unknown]
  - Attention deficit/hyperactivity disorder [Unknown]
  - Restless legs syndrome [Unknown]
  - Insomnia [Unknown]
  - Dyspepsia [Unknown]
  - Vomiting [Unknown]
  - Drug dose omission [Unknown]
  - Drug ineffective [Unknown]
